FAERS Safety Report 6575843-9 (Version None)
Quarter: 2010Q1

REPORT INFORMATION
  Report Type: 
  Country: None (occurrence: None)
  Receive Date: 20100209
  Receipt Date: 20100203
  Transmission Date: 20100710
  Serious: Yes (Other)
  Sender: FDA-Public Use
  Company Number: US-ABBOTT-10P-163-0624030-00

PATIENT
  Sex: Male
  Weight: 94.432 kg

DRUGS (2)
  1. HUMIRA [Suspect]
     Indication: RHEUMATOID ARTHRITIS
     Dates: start: 20090201, end: 20091201
  2. HUMIRA [Suspect]
     Dates: start: 20100203

REACTIONS (1)
  - NASAL SEPTUM DEVIATION [None]
